FAERS Safety Report 10083085 (Version 2)
Quarter: 2014Q2

REPORT INFORMATION
  Report Type: Spontaneous
  Country: US (occurrence: US)
  Receive Date: 20140417
  Receipt Date: 20140424
  Transmission Date: 20141212
  Serious: No
  Sender: FDA-Public Use
  Company Number: US-BIOGENIDEC-2014BI036238

PATIENT
  Age: 53 Year
  Sex: Female

DRUGS (1)
  1. TYSABRI [Suspect]
     Indication: MULTIPLE SCLEROSIS
     Route: 042
     Dates: start: 20130814

REACTIONS (4)
  - Fall [Recovered/Resolved]
  - Laceration [Not Recovered/Not Resolved]
  - Limb injury [Recovered/Resolved]
  - Wound [Recovered/Resolved]
